FAERS Safety Report 8266152-0 (Version None)
Quarter: 2012Q2

REPORT INFORMATION
  Report Type: 
  Country: None (occurrence: None)
  Receive Date: 20120406
  Receipt Date: 20120404
  Transmission Date: 20120825
  Serious: Yes (Death)
  Sender: FDA-Public Use
  Company Number: PHHY2012CA029225

PATIENT
  Sex: Female

DRUGS (2)
  1. EXJADE [Suspect]
     Indication: MYELODYSPLASTIC SYNDROME TRANSFORMATION
     Dosage: 1000 MG, UNK
     Route: 048
     Dates: start: 20110401
  2. EXJADE [Suspect]
     Indication: ACUTE LEUKAEMIA

REACTIONS (1)
  - DEATH [None]
